FAERS Safety Report 6834890-X (Version None)
Quarter: 2010Q3

REPORT INFORMATION
  Report Type: 
  Country: None (occurrence: None)
  Receive Date: 20100712
  Receipt Date: 20080818
  Transmission Date: 20110219
  Serious: Yes (Other)
  Sender: FDA-Public Use
  Company Number: US-PFIZER INC-2007022759

PATIENT
  Sex: Female
  Weight: 81.6 kg

DRUGS (8)
  1. CHANTIX [Suspect]
     Indication: SMOKING CESSATION THERAPY
     Dates: start: 20070101
  2. TRILEPTAL [Suspect]
     Indication: MOOD ALTERED
     Dates: start: 20080815
  3. BETASERON [Concomitant]
     Indication: MULTIPLE SCLEROSIS
  4. LO/OVRAL [Concomitant]
     Indication: CONTRACEPTION
  5. NEURONTIN [Concomitant]
  6. ORAL CONTRACEPTIVE NOS [Concomitant]
     Dates: start: 20080801
  7. WELLBUTRIN [Concomitant]
     Indication: DEPRESSION
     Dates: start: 20080101
  8. CLARITIN [Concomitant]

REACTIONS (15)
  - ABNORMAL DREAMS [None]
  - AMENORRHOEA [None]
  - ANGER [None]
  - ANXIETY [None]
  - BLOOD CHOLESTEROL INCREASED [None]
  - BLOOD TRIGLYCERIDES INCREASED [None]
  - DISCOMFORT [None]
  - DRUG INEFFECTIVE [None]
  - FACTITIOUS DISORDER [None]
  - INSOMNIA [None]
  - MENSTRUATION DELAYED [None]
  - MENSTRUATION IRREGULAR [None]
  - NAUSEA [None]
  - STRESS [None]
  - WEIGHT INCREASED [None]
